FAERS Safety Report 10211613 (Version 1)
Quarter: 2014Q2

REPORT INFORMATION
  Report Type: Spontaneous
  Country: US (occurrence: US)
  Receive Date: 20140602
  Receipt Date: 20140602
  Transmission Date: 20141212
  Serious: No
  Sender: FDA-Public Use
  Company Number: US-PFIZER INC-2014149374

PATIENT
  Age: 44 Year
  Sex: Female
  Weight: 95.24 kg

DRUGS (4)
  1. PRISTIQ [Suspect]
     Dosage: UNK
  2. XANAX [Suspect]
     Dosage: UNK
  3. PROZAC [Suspect]
     Dosage: UNK
  4. ATIVAN [Suspect]
     Dosage: UNK

REACTIONS (1)
  - Drug hypersensitivity [Unknown]
